FAERS Safety Report 7884427-1 (Version None)
Quarter: 2011Q4

REPORT INFORMATION
  Report Type: 
  Country: None (occurrence: None)
  Receive Date: 20111102
  Receipt Date: 20110722
  Transmission Date: 20120403
  Serious: No
  Sender: FDA-Public Use
  Company Number: US-ASTRAZENECA-2011SE44085

PATIENT
  Age: 52 Year
  Sex: Male

DRUGS (5)
  1. VANDETANIB [Suspect]
     Indication: THYROID CANCER
     Route: 048
  2. SPIRONOLACTONE [Concomitant]
  3. SYNTHROID [Concomitant]
  4. OXYCODONE HCL [Concomitant]
  5. LOPERAMIND HCL [Concomitant]

REACTIONS (3)
  - OEDEMA PERIPHERAL [None]
  - COUGH [None]
  - EAR DISCOMFORT [None]
